FAERS Safety Report 11899301 (Version 1)
Quarter: 2016Q1

REPORT INFORMATION
  Report Type: Spontaneous
  Country: US (occurrence: US)
  Receive Date: 20160108
  Receipt Date: 20160108
  Transmission Date: 20160526
  Serious: No
  Sender: FDA-Public Use
  Company Number: US-SA-2015SA158406

PATIENT
  Age: 68 Year
  Sex: Male

DRUGS (1)
  1. AFREZZA [Suspect]
     Active Substance: INSULIN HUMAN
     Dosage: DOSE:10-16 UNITS?FREQUENCY: EACH MEAL?ROUTE: INHALATION

REACTIONS (2)
  - Drug ineffective [Unknown]
  - Cough [Unknown]
